FAERS Safety Report 8242425-2 (Version None)
Quarter: 2012Q1

REPORT INFORMATION
  Report Type: 
  Country: None (occurrence: None)
  Receive Date: 20120329
  Receipt Date: 20120321
  Transmission Date: 20120608
  Serious: No
  Sender: FDA-Public Use
  Company Number: US-US-EMD SERONO, INC.-7117453

PATIENT
  Sex: Male
  Weight: 113 kg

DRUGS (6)
  1. PROPYLENE GLYCOL [Concomitant]
     Indication: PRODUCT USED FOR UNKNOWN INDICATION
     Dosage: TWO DOSES
  2. BISOPROLOL FUMARATE [Concomitant]
     Indication: PRODUCT USED FOR UNKNOWN INDICATION
     Dosage: 6.25
  3. REBIF [Suspect]
     Indication: MULTIPLE SCLEROSIS
     Route: 058
     Dates: start: 20120106, end: 20120117
  4. ASPIRIN [Concomitant]
     Indication: PROPHYLAXIS
  5. TRAMADOL HCL [Concomitant]
     Indication: PAIN
     Dosage: 4-6 TIMES
  6. SOMA [Concomitant]
     Indication: MUSCLE SPASMS
     Dosage: EVERY EVENING

REACTIONS (4)
  - PRURITUS GENERALISED [None]
  - DYSPNOEA [None]
  - BALANCE DISORDER [None]
  - HEADACHE [None]
